FAERS Safety Report 14728633 (Version 4)
Quarter: 2018Q2

REPORT INFORMATION
  Report Type: Spontaneous
  Country: US (occurrence: US)
  Receive Date: 20180406
  Receipt Date: 20180524
  Transmission Date: 20180711
  Serious: Yes (Hospitalization, Other)
  Sender: FDA-Public Use
  Company Number: US-UNITED THERAPEUTICS-UNT-2018-004457

PATIENT
  Sex: Male

DRUGS (3)
  1. ORENITRAM [Suspect]
     Active Substance: TREPROSTINIL
     Dosage: 3 MG, TID
     Route: 048
  2. ORENITRAM [Suspect]
     Active Substance: TREPROSTINIL
     Dosage: 4.5 MG, TID
     Route: 048
  3. ORENITRAM [Suspect]
     Active Substance: TREPROSTINIL
     Indication: PULMONARY ARTERIAL HYPERTENSION
     Dosage: 2 MG, TID
     Route: 048
     Dates: start: 20180209

REACTIONS (7)
  - Renal failure [Unknown]
  - Headache [Unknown]
  - Right ventricular failure [Unknown]
  - Pain in extremity [Unknown]
  - Nausea [Unknown]
  - Oxygen consumption increased [Unknown]
  - Arthralgia [Unknown]

NARRATIVE: CASE EVENT DATE: 20180328
